FAERS Safety Report 23024300 (Version 2)
Quarter: 2023Q4

REPORT INFORMATION
  Report Type: Spontaneous
  Country: US (occurrence: US)
  Receive Date: 20231004
  Receipt Date: 20231010
  Transmission Date: 20240110
  Serious: Yes (Life-Threatening, Hospitalization, Other)
  Sender: FDA-Public Use
  Company Number: US-MLMSERVICE-20230918-4551374-2

PATIENT
  Age: 61 Year
  Sex: Female

DRUGS (1)
  1. DIVALPROEX SODIUM [Suspect]
     Active Substance: DIVALPROEX SODIUM
     Indication: Product used for unknown indication
     Dosage: 200 DOSAGE FORM (1 TOTAL)
     Route: 048

REACTIONS (8)
  - Unresponsive to stimuli [Unknown]
  - Hyperammonaemia [Unknown]
  - Hypotension [Unknown]
  - Hypothermia [Unknown]
  - Bradypnoea [Unknown]
  - Intentional overdose [Recovering/Resolving]
  - Toxicity to various agents [Recovering/Resolving]
  - Suicide attempt [Recovering/Resolving]
